FAERS Safety Report 25528462 (Version 2)
Quarter: 2025Q3

REPORT INFORMATION
  Report Type: Report from Study
  Country: JP (occurrence: JP)
  Receive Date: 20250708
  Receipt Date: 20250725
  Transmission Date: 20251021
  Serious: Yes (Death, Other)
  Sender: BRISTOL-MYERS SQUIBB COMPANY
  Company Number: JP-BRISTOL-MYERS SQUIBB COMPANY-2025-095410

PATIENT
  Age: 65 Year
  Sex: Male
  Weight: 60.4 kg

DRUGS (4)
  1. BREYANZI [Suspect]
     Active Substance: LISOCABTAGENE MARALEUCEL
     Indication: Diffuse large B-cell lymphoma
     Route: 041
     Dates: start: 20240828, end: 20240828
  2. TOCILIZUMAB [Suspect]
     Active Substance: TOCILIZUMAB
     Indication: Cytokine release syndrome
  3. FLUDARABINE [Concomitant]
     Active Substance: FLUDARABINE PHOSPHATE
     Indication: Diffuse large B-cell lymphoma
     Dates: start: 20240823, end: 20240825
  4. CYCLOPHOSPHAMIDE [Concomitant]
     Active Substance: CYCLOPHOSPHAMIDE
     Indication: Diffuse large B-cell lymphoma
     Dates: start: 20240823, end: 20240825

REACTIONS (7)
  - Cytokine release syndrome [Fatal]
  - Enterococcal sepsis [Fatal]
  - Malignant neoplasm progression [Fatal]
  - Pulmonary alveolar haemorrhage [Fatal]
  - Gastrointestinal haemorrhage [Fatal]
  - Acute respiratory distress syndrome [Fatal]
  - Disseminated intravascular coagulation [Fatal]

NARRATIVE: CASE EVENT DATE: 20240828
